FAERS Safety Report 8966853 (Version 1)
Quarter: 2012Q4

REPORT INFORMATION
  Report Type: 
  Country: DE (occurrence: DE)
  Receive Date: 20121214
  Receipt Date: 20121214
  Transmission Date: 20130627
  Serious: Yes (Hospitalization)
  Sender: FDA-Public Use
  Company Number: CHPA2012DE025310

PATIENT
  Age: 16 Year
  Sex: Male

DRUGS (1)
  1. DEXTROMETHORPHAN [Suspect]
     Indication: SUICIDAL IDEATION
     Dosage: 510 mg, QD
     Route: 048
     Dates: start: 20120731

REACTIONS (3)
  - Suicide attempt [Unknown]
  - Somnolence [Unknown]
  - Intentional overdose [Unknown]
